FAERS Safety Report 9772740 (Version 3)
Quarter: 2014Q1

REPORT INFORMATION
  Report Type: Report from Study
  Country: FR (occurrence: FR)
  Receive Date: 20131219
  Receipt Date: 20140207
  Transmission Date: 20141002
  Serious: Yes (Other)
  Sender: FDA-Public Use
  Company Number: FR-TEVA-451701USA

PATIENT
  Age: 74 Year
  Sex: Male
  Weight: 78 kg

DRUGS (18)
  1. BENDAMUSTINE [Suspect]
     Indication: MANTLE CELL LYMPHOMA
     Dosage: 90 MG/M2 (190 MG) ON DAY 1  AND 2 OF EACH COURSE
     Route: 042
     Dates: start: 20121219, end: 20130521
  2. BENDAMUSTINE [Suspect]
     Dosage: CYCLE 2
     Route: 042
     Dates: start: 201301
  3. BENDAMUSTINE [Suspect]
     Dosage: CYCLE 3
     Route: 042
     Dates: start: 201302
  4. BENDAMUSTINE [Suspect]
     Dosage: CYCLE 4
     Route: 042
     Dates: start: 20130312
  5. DEXAMETHASONE [Suspect]
     Indication: MANTLE CELL LYMPHOMA
     Dosage: D2 PER CYCLE
     Route: 042
     Dates: start: 20121220, end: 20130522
  6. DEXAMETHASONE [Suspect]
     Dosage: CYCLE 2
     Route: 042
     Dates: start: 201301
  7. DEXAMETHASONE [Suspect]
     Dosage: CYCLE 3
     Route: 042
     Dates: start: 201302
  8. DEXAMETHASONE [Suspect]
     Dosage: CYCLE 4
     Route: 042
     Dates: start: 20130312
  9. RITUXIMAB [Suspect]
     Indication: MANTLE CELL LYMPHOMA
     Dosage: (770 MG) D1 PER CYCLE
     Route: 042
     Dates: start: 20121219, end: 20130521
  10. RITUXIMAB [Suspect]
     Route: 042
     Dates: start: 201301
  11. RITUXIMAB [Suspect]
     Route: 042
     Dates: start: 201302
  12. RITUXIMAB [Suspect]
     Route: 042
     Dates: start: 20130312
  13. BORTEZOMIB [Suspect]
     Indication: MANTLE CELL LYMPHOMA
     Dosage: (2.65 MG) D1, D4, D8 AND D11 PER CYCLE
     Route: 058
     Dates: start: 20121219, end: 20130531
  14. BORTEZOMIB [Suspect]
     Route: 058
     Dates: start: 201301
  15. BORTEZOMIB [Suspect]
     Route: 058
     Dates: start: 201302
  16. BORTEZOMIB [Suspect]
     Route: 058
     Dates: start: 20130312
  17. VALSARTAN [Concomitant]
     Indication: ESSENTIAL HYPERTENSION
  18. ANTIHISTAMINES [Concomitant]
     Indication: ECZEMA

REACTIONS (1)
  - Polyneuropathy [Recovering/Resolving]
